FAERS Safety Report 9491338 (Version 1)
Quarter: 2013Q1

REPORT INFORMATION
  Report Type: Not Available
  Country: US (occurrence: US)
  Receive Date: 20120619
  Receipt Date: 20120619
  Transmission Date: 20140127
  Serious: No
  Sender: FDA-Public Use
  Company Number: US-LUNDBECK-DKLU1080338

PATIENT
  Sex: Male

DRUGS (2)
  1. SABRIL     (TABLET) [Suspect]
     Indication: CONVULSION
     Route: 048
     Dates: start: 201204
  2. SABRIL     (TABLET) [Suspect]
     Route: 048
     Dates: start: 201204

REACTIONS (3)
  - Agitation [Unknown]
  - Vomiting [Unknown]
  - Irritability [Unknown]
